FAERS Safety Report 4562193-5 (Version None)
Quarter: 2005Q1

REPORT INFORMATION
  Report Type: 
  Country: None (occurrence: None)
  Receive Date: 20050124
  Receipt Date: 20050113
  Transmission Date: 20050727
  Serious: Yes (Death)
  Sender: FDA-Public Use
  Company Number: B0364461A

PATIENT
  Age: 58 Year
  Sex: 0

DRUGS (6)
  1. ALKERAN [Suspect]
     Indication: AMYLOIDOSIS
     Dosage: INTRAVENOUS
     Route: 042
  2. VINCRISTINE [Suspect]
  3. DOXORUBICIN HYDROCHLORIDE [Suspect]
  4. IFOSFAMIDE [Suspect]
     Indication: HAEMATOPOIETIC STEM CELL MOBILISATION
  5. GRANULOCYTE COL.STIM.FACT (FORMULATION UNKNOWN) (GRANULOCYTE COL.STIM. [Suspect]
     Indication: HAEMATOPOIETIC STEM CELL MOBILISATION
  6. STEM CELL TRANSPLANT [Concomitant]

REACTIONS (1)
  - INTESTINAL HAEMORRHAGE [None]
